FAERS Safety Report 15997363 (Version 1)
Quarter: 2019Q1

REPORT INFORMATION
  Report Type: Spontaneous
  Country: IN (occurrence: IN)
  Receive Date: 20190222
  Receipt Date: 20190222
  Transmission Date: 20190418
  Serious: Yes (Other)
  Sender: FDA-Public Use
  Company Number: IN-FRESENIUS KABI-FK201901841

PATIENT
  Age: 19 Year
  Sex: Female

DRUGS (3)
  1. CYTARABINE (MANUFACTURER UNKNOWN) [Suspect]
     Active Substance: CYTARABINE
     Indication: ACUTE MYELOID LEUKAEMIA
     Dosage: FOR 7 DAYS
     Route: 065
  2. CYTARABINE (MANUFACTURER UNKNOWN) [Suspect]
     Active Substance: CYTARABINE
     Dosage: 3 GM/M2 IN TWO DIVIDED DOSE; TOTAL DOSE: 18 GM/M2 GIVEN OVER 5 DAYS (DAY 1, 3 AND 5) VIA INFUSION
     Route: 065
  3. DAUNORUBICIN [Suspect]
     Active Substance: DAUNORUBICIN
     Indication: ACUTE MYELOID LEUKAEMIA
     Route: 065

REACTIONS (2)
  - Pneumonia fungal [Unknown]
  - Febrile neutropenia [Unknown]
